FAERS Safety Report 5685405-3 (Version None)
Quarter: 2008Q1

REPORT INFORMATION
  Report Type: 
  Country: None (occurrence: None)
  Receive Date: 20080328
  Receipt Date: 20080319
  Transmission Date: 20080703
  Serious: Yes (Hospitalization)
  Sender: FDA-Public Use
  Company Number: FR-PFIZER INC-2008025782

PATIENT
  Age: 57 Year
  Sex: Male

DRUGS (4)
  1. TAHOR [Suspect]
  2. AMLOR [Suspect]
  3. AMLODIPINE BESYLATE/VALSARTAN [Suspect]
  4. LOVENOX [Suspect]

REACTIONS (2)
  - BLOOD PRESSURE ABNORMAL [None]
  - ERECTILE DYSFUNCTION [None]
